FAERS Safety Report 5838107-4 (Version None)
Quarter: 2008Q3

REPORT INFORMATION
  Report Type: 
  Country: None (occurrence: None)
  Receive Date: 20080808
  Receipt Date: 20080801
  Transmission Date: 20090109
  Serious: Yes (Other)
  Sender: FDA-Public Use
  Company Number: DE-JNJFOC-20080800084

PATIENT
  Sex: Female
  Weight: 66 kg

DRUGS (9)
  1. RISPERDAL [Suspect]
     Route: 048
  2. RISPERDAL [Suspect]
     Route: 048
  3. RISPERDAL [Suspect]
     Indication: DRUG USE FOR UNKNOWN INDICATION
     Route: 048
  4. REMERGIL [Suspect]
     Route: 048
  5. REMERGIL [Suspect]
     Indication: DEPRESSION
     Route: 048
  6. KALINOR [Concomitant]
     Route: 048
  7. ENOXAPARIN SODIUM [Concomitant]
     Indication: THROMBOSIS PROPHYLAXIS
     Route: 058
  8. NOVAMINSULFON [Concomitant]
     Route: 048
  9. NOVAMINSULFON [Concomitant]
     Route: 048

REACTIONS (1)
  - LEUKOPENIA [None]
